FAERS Safety Report 23528296 (Version 1)
Quarter: 2024Q1

REPORT INFORMATION
  Report Type: Spontaneous
  Country: US (occurrence: US)
  Receive Date: 20240215
  Receipt Date: 20240215
  Transmission Date: 20240410
  Serious: No
  Sender: FDA-Public Use
  Company Number: US-PFIZER INC-PV202400020034

PATIENT
  Age: 52 Year
  Sex: Female

DRUGS (2)
  1. XELJANZ XR [Suspect]
     Active Substance: TOFACITINIB CITRATE
     Indication: Rheumatoid arthritis
     Dosage: 11 MG, DAILY
     Route: 048
     Dates: start: 20230913
  2. PLAQUENIL [Concomitant]
     Active Substance: HYDROXYCHLOROQUINE SULFATE

REACTIONS (5)
  - COVID-19 [Unknown]
  - Fatigue [Recovered/Resolved]
  - Pain [Recovered/Resolved]
  - Cough [Not Recovered/Not Resolved]
  - Nasal congestion [Not Recovered/Not Resolved]
